FAERS Safety Report 9397909 (Version 1)
Quarter: 2013Q3

REPORT INFORMATION
  Report Type: Spontaneous
  Country: PK (occurrence: None)
  Receive Date: 20130709
  Receipt Date: 20130709
  Transmission Date: 20140515
  Serious: Yes (Death, Hospitalization)
  Sender: FDA-Public Use
  Company Number: FK201302317

PATIENT
  Age: 26 Year
  Sex: Male

DRUGS (1)
  1. VALPROATE [Suspect]
     Indication: EPILEPSY

REACTIONS (12)
  - Toxic epidermal necrolysis [None]
  - Heart rate increased [None]
  - Haemoglobin decreased [None]
  - Haematocrit decreased [None]
  - Blood sodium decreased [None]
  - Blood glucose increased [None]
  - Blood pH decreased [None]
  - PCO2 decreased [None]
  - Blood bicarbonate decreased [None]
  - Base excess decreased [None]
  - Multi-organ failure [None]
  - Pneumonia [None]
